FAERS Safety Report 18678991 (Version 3)
Quarter: 2021Q1

REPORT INFORMATION
  Report Type: Report from Study
  Country: US (occurrence: US)
  Receive Date: 20201230
  Receipt Date: 20210324
  Transmission Date: 20210419
  Serious: Yes (Other)
  Sender: FDA-Public Use
  Company Number: NVSC2020US341757

PATIENT
  Age: 62 Year
  Sex: Female

DRUGS (1)
  1. MAYZENT [Suspect]
     Active Substance: SIPONIMOD
     Indication: MULTIPLE SCLEROSIS
     Dosage: 1 MG, QD
     Route: 048
     Dates: start: 202011

REACTIONS (3)
  - Trigger finger [Unknown]
  - Carpal tunnel syndrome [Unknown]
  - Primary progressive multiple sclerosis [Unknown]

NARRATIVE: CASE EVENT DATE: 202012
